FAERS Safety Report 4848267-X (Version None)
Quarter: 2005Q4

REPORT INFORMATION
  Report Type: 
  Country: None (occurrence: None)
  Receive Date: 20051208
  Receipt Date: 20051107
  Transmission Date: 20060501
  Serious: Yes (Other)
  Sender: FDA-Public Use
  Company Number: 2005AC01808

PATIENT
  Age: 56 Year
  Sex: Male

DRUGS (12)
  1. PROPOFOL [Suspect]
     Indication: STATUS EPILEPTICUS
  2. MORPHINE [Suspect]
     Indication: BACK PAIN
     Dosage: DOSE NEVER GIVEN
  3. CEFAZOLIN [Suspect]
     Indication: BACK PAIN
     Route: 037
  4. LORAZEPAM [Concomitant]
     Indication: CONVULSION
     Route: 042
  5. LORAZEPAM [Concomitant]
     Indication: PAIN
     Route: 042
  6. FOSPHENYTOIN SODIUM [Concomitant]
     Indication: CONVULSION
  7. FOSPHENYTOIN SODIUM [Concomitant]
     Indication: PAIN
  8. PHENOBARBITOL [Concomitant]
     Indication: STATUS EPILEPTICUS
  9. DIAZEPAM [Concomitant]
     Indication: CONVULSION
     Route: 042
  10. MIDAZOLAM [Concomitant]
     Indication: DYSKINESIA
     Route: 042
  11. MIDAZOLAM [Concomitant]
     Indication: NYSTAGMUS
     Route: 042
  12. MIDAZOLAM [Concomitant]
     Route: 042

REACTIONS (13)
  - BACK PAIN [None]
  - CONVULSION [None]
  - DISTURBANCE IN ATTENTION [None]
  - DYSKINESIA [None]
  - HYPOTENSION [None]
  - LOSS OF CONSCIOUSNESS [None]
  - MEDICATION ERROR [None]
  - MEMORY IMPAIRMENT [None]
  - MYOCLONUS [None]
  - NYSTAGMUS [None]
  - PAIN IN EXTREMITY [None]
  - PARTIAL SEIZURES [None]
  - STATUS EPILEPTICUS [None]
